FAERS Safety Report 10470503 (Version 1)
Quarter: 2014Q3

REPORT INFORMATION
  Report Type: Report from Study
  Country: US (occurrence: US)
  Receive Date: 20140923
  Receipt Date: 20140923
  Transmission Date: 20150326
  Serious: Yes (Other)
  Sender: FDA-Public Use
  Company Number: US-SA-2014SA129366

PATIENT
  Age: 28 Year
  Sex: Female

DRUGS (1)
  1. AUBAGIO [Suspect]
     Active Substance: TERIFLUNOMIDE
     Indication: MULTIPLE SCLEROSIS
     Dosage: DOSE:7
     Route: 048
     Dates: start: 20140722

REACTIONS (5)
  - Sputum discoloured [Unknown]
  - Oral infection [Unknown]
  - Pulmonary congestion [Unknown]
  - Nasal congestion [Unknown]
  - White blood cell count increased [Unknown]
